FAERS Safety Report 7854083-7 (Version None)
Quarter: 2011Q4

REPORT INFORMATION
  Report Type: 
  Country: None (occurrence: None)
  Receive Date: 20111026
  Receipt Date: 20111021
  Transmission Date: 20120403
  Serious: No
  Sender: FDA-Public Use
  Company Number: US-PFIZER INC-2011256127

PATIENT
  Sex: Female
  Weight: 73.923 kg

DRUGS (4)
  1. LIPITOR [Suspect]
     Indication: BLOOD CHOLESTEROL INCREASED
     Dosage: 10 MG, 1X/DAY
     Route: 048
  2. DIOVAN [Concomitant]
     Dosage: UNK
  3. ASPIRIN [Concomitant]
     Dosage: UNK
  4. MULTI-VITAMINS [Concomitant]
     Dosage: UNK

REACTIONS (1)
  - DYSGEUSIA [None]
